FAERS Safety Report 7819889 (Version 2)
Quarter: 2013Q4

REPORT INFORMATION
  Report Type: Spontaneous
  Country: US (occurrence: US)
  Receive Date: 20110221
  Receipt Date: 20131001
  Transmission Date: 20140711
  Serious: Yes (Hospitalization)
  Sender: FDA-Public Use
  Company Number: US-RANBAXY-2010US-39639

PATIENT
  Age: 19 Year
  Sex: Male

DRUGS (1)
  1. PARACETAMOL [Suspect]
     Indication: PRODUCT USED FOR UNKNOWN INDICATION
     Dosage: UNK
     Route: 048

REACTIONS (6)
  - Overdose [Recovered/Resolved]
  - Mydriasis [Recovered/Resolved]
  - Optic atrophy [Recovered/Resolved]
  - Lactic acidosis [Recovered/Resolved]
  - Lactate pyruvate ratio increased [Recovered/Resolved]
  - Hypertransaminasaemia [Recovered/Resolved]
